FAERS Safety Report 24362439 (Version 1)
Quarter: 2024Q3

REPORT INFORMATION
  Report Type: Spontaneous
  Country: HR (occurrence: HR)
  Receive Date: 20240925
  Receipt Date: 20240925
  Transmission Date: 20241016
  Serious: Yes (Other)
  Sender: CHEPLAPHARM
  Company Number: None

PATIENT
  Age: 39 Year
  Sex: Female

DRUGS (2)
  1. CLONAZEPAM [Suspect]
     Active Substance: CLONAZEPAM
     Indication: Suicidal ideation
     Dosage: 9 TBL RIVOTRIL A 2MG
     Route: 048
     Dates: start: 20240701, end: 20240701
  2. QUETIAPINE FUMARATE [Suspect]
     Active Substance: QUETIAPINE FUMARATE
     Indication: Suicidal ideation
     Dosage: 10 TBL QUETIAPINE AND 400 MG
     Route: 048
     Dates: start: 20240701, end: 20240701

REACTIONS (4)
  - Suicide attempt [Unknown]
  - Loss of consciousness [Unknown]
  - Tachycardia [Unknown]
  - Intentional overdose [Unknown]

NARRATIVE: CASE EVENT DATE: 20240701
